FAERS Safety Report 9997577 (Version 1)
Quarter: 2014Q1

REPORT INFORMATION
  Report Type: Spontaneous
  Country: US (occurrence: US)
  Receive Date: 20140311
  Receipt Date: 20140311
  Transmission Date: 20141002
  Serious: No
  Sender: FDA-Public Use
  Company Number: US-JNJFOC-20140300238

PATIENT
  Sex: Female

DRUGS (1)
  1. DURAGESIC [Suspect]
     Indication: POST-TRAUMATIC PAIN
     Route: 062

REACTIONS (4)
  - Drug dose omission [Unknown]
  - Formication [Recovered/Resolved]
  - Treatment noncompliance [Not Recovered/Not Resolved]
  - Pain [Not Recovered/Not Resolved]
